FAERS Safety Report 15437407 (Version 6)
Quarter: 2025Q4

REPORT INFORMATION
  Report Type: Spontaneous
  Country: US (occurrence: US)
  Receive Date: 20180927
  Receipt Date: 20251125
  Transmission Date: 20260118
  Serious: Yes (Other)
  Sender: AMGEN
  Company Number: US-AMGEN-USASP2018110676

PATIENT
  Age: 78 Year
  Sex: Male

DRUGS (19)
  1. XGEVA [Suspect]
     Active Substance: DENOSUMAB
     Indication: Product used for unknown indication
     Dosage: UNK
     Route: 065
  2. XTANDI [Suspect]
     Active Substance: ENZALUTAMIDE
     Indication: Prostate cancer
     Dosage: 160 MILLIGRAM, QD, STRENGTH:40 MG
     Route: 048
     Dates: start: 201802
  3. FIRMAGON [Suspect]
     Active Substance: DEGARELIX ACETATE
     Indication: Product used for unknown indication
     Dosage: UNK
     Route: 065
     Dates: start: 20191210
  4. ATENOLOL [Concomitant]
     Active Substance: ATENOLOL
  5. BENZONATATE [Concomitant]
     Active Substance: BENZONATATE
     Indication: Product used for unknown indication
     Route: 065
  6. BOTULINUM TOXIN TYPE A [Concomitant]
     Active Substance: BOTULINUM TOXIN TYPE A
  7. BRIMONIDINE [Concomitant]
     Active Substance: BRIMONIDINE TARTRATE
  8. DEXAMETHASONE [Concomitant]
     Active Substance: DEXAMETHASONE
  9. DORZOLAMIDE [Concomitant]
     Active Substance: DORZOLAMIDE
  10. GEMTESA [Concomitant]
     Active Substance: VIBEGRON
  11. LINEZOLID [Concomitant]
     Active Substance: LINEZOLID
  12. LOSARTAN [Concomitant]
     Active Substance: LOSARTAN
  13. NYSTATIN AND TRIAMCINOLONE [Concomitant]
     Active Substance: NYSTATIN\TRIAMCINOLONE ACETONIDE
  14. PRAVASTATIN [Concomitant]
     Active Substance: PRAVASTATIN
  15. SIMBRINZA [Concomitant]
     Active Substance: BRIMONIDINE TARTRATE\BRINZOLAMIDE
  16. SIMVASTATIN [Concomitant]
     Active Substance: SIMVASTATIN
  17. TEMAZEPAM [Concomitant]
     Active Substance: TEMAZEPAM
  18. TOBRAMYCIN [Concomitant]
     Active Substance: TOBRAMYCIN
  19. VITAMIN B12 [Concomitant]
     Active Substance: CYANOCOBALAMIN

REACTIONS (14)
  - Foreign body in throat [Unknown]
  - Insomnia [Unknown]
  - Anxiety [Unknown]
  - Movement disorder [Unknown]
  - Pain [Unknown]
  - Increased appetite [Unknown]
  - Injection site pain [Unknown]
  - Injection site movement impairment [Unknown]
  - Injection site swelling [Unknown]
  - Alopecia [Unknown]
  - Dyspnoea [Unknown]
  - Product use complaint [Unknown]
  - Cough [Unknown]
  - Throat irritation [Unknown]

NARRATIVE: CASE EVENT DATE: 20180201
